FAERS Safety Report 13307270 (Version 2)
Quarter: 2017Q3

REPORT INFORMATION
  Report Type: Report from Study
  Country: US (occurrence: US)
  Receive Date: 20170308
  Receipt Date: 20170703
  Transmission Date: 20171127
  Serious: Yes (Death)
  Sender: FDA-Public Use
  Company Number: US-SA-2017SA037625

PATIENT
  Age: 15 Year
  Sex: Male
  Weight: 56.2 kg

DRUGS (4)
  1. DINUTUXIMAB [Suspect]
     Active Substance: DINUTUXIMAB
     Indication: OSTEOSARCOMA
     Route: 041
     Dates: start: 20170227, end: 20170301
  2. DINUTUXIMAB [Suspect]
     Active Substance: DINUTUXIMAB
     Indication: OSTEOSARCOMA
     Route: 041
     Dates: start: 20170127
  3. TYLENOL [Concomitant]
     Active Substance: ACETAMINOPHEN
     Indication: PYREXIA
     Dates: start: 201701
  4. LEUKINE [Suspect]
     Active Substance: SARGRAMOSTIM
     Indication: OSTEOSARCOMA
     Route: 058
     Dates: start: 20170224, end: 20170302

REACTIONS (1)
  - Sudden cardiac death [Fatal]

NARRATIVE: CASE EVENT DATE: 20170303
